FAERS Safety Report 12999626 (Version 1)
Quarter: 2016Q4

REPORT INFORMATION
  Report Type: Spontaneous
  Country: RU (occurrence: RU)
  Receive Date: 20161205
  Receipt Date: 20161205
  Transmission Date: 20170207
  Serious: Yes (Other)
  Sender: FDA-Public Use
  Company Number: RU-TEVA-715581ISR

PATIENT

DRUGS (1)
  1. RAPIMED [Suspect]
     Active Substance: SUMATRIPTAN

REACTIONS (4)
  - Confusional state [Unknown]
  - Dizziness [Unknown]
  - Muscular weakness [Unknown]
  - Heart rate decreased [Unknown]
